FAERS Safety Report 17747918 (Version 1)
Quarter: 2020Q2

REPORT INFORMATION
  Report Type: Spontaneous
  Country: US (occurrence: US)
  Receive Date: 20200505
  Receipt Date: 20200505
  Transmission Date: 20200714
  Serious: No
  Sender: FDA-Public Use
  Company Number: US-ROCHE-2444986

PATIENT
  Sex: Male
  Weight: 82.63 kg

DRUGS (2)
  1. PRILOSEC [Concomitant]
     Active Substance: OMEPRAZOLE MAGNESIUM
     Indication: GASTROOESOPHAGEAL REFLUX DISEASE
     Dosage: 1 OTC PILL A DAY ;ONGOING: YES
     Route: 048
  2. ESBRIET [Suspect]
     Active Substance: PIRFENIDONE
     Indication: IDIOPATHIC PULMONARY FIBROSIS
     Dosage: 3 267 MG CAPSULES 3 TIMES A DAY ;ONGOING: YES
     Route: 048

REACTIONS (6)
  - Diarrhoea [Recovered/Resolved]
  - Pain [Recovering/Resolving]
  - Cough [Unknown]
  - Fatigue [Recovering/Resolving]
  - Productive cough [Unknown]
  - Hypersomnia [Recovering/Resolving]
